FAERS Safety Report 7475414-6 (Version None)
Quarter: 2011Q2

REPORT INFORMATION
  Report Type: 
  Country: None (occurrence: None)
  Receive Date: 20110512
  Receipt Date: 20110427
  Transmission Date: 20111010
  Serious: Yes (Hospitalization, Other)
  Sender: FDA-Public Use
  Company Number: US-JNJFOC-20110500106

PATIENT
  Sex: Female
  Weight: 81.65 kg

DRUGS (2)
  1. HALDOL [Suspect]
     Indication: AGITATION
     Route: 030
  2. HALDOL [Suspect]
     Indication: ILL-DEFINED DISORDER
     Route: 065

REACTIONS (21)
  - DYSPNOEA [None]
  - DISTURBANCE IN SOCIAL BEHAVIOUR [None]
  - ANXIETY [None]
  - DECREASED APPETITE [None]
  - EYE PAIN [None]
  - SUICIDAL IDEATION [None]
  - PALPITATIONS [None]
  - DIZZINESS [None]
  - WEIGHT DECREASED [None]
  - GAIT DISTURBANCE [None]
  - THIRST [None]
  - DYSSTASIA [None]
  - HEADACHE [None]
  - VISION BLURRED [None]
  - HOSPITALISATION [None]
  - HYPERHIDROSIS [None]
  - INSOMNIA [None]
  - PARALYSIS [None]
  - TREMOR [None]
  - RESTLESSNESS [None]
  - DYSPHAGIA [None]
